FAERS Safety Report 9071045 (Version 1)
Quarter: 2013Q1

REPORT INFORMATION
  Report Type: Spontaneous
  Country: US (occurrence: US)
  Receive Date: 20130206
  Receipt Date: 20130206
  Transmission Date: 20140127
  Serious: No
  Sender: FDA-Public Use
  Company Number: US-ALLERGAN-1208231US

PATIENT
  Age: 72 Year
  Sex: Female

DRUGS (13)
  1. RESTASIS? [Suspect]
     Indication: DRY EYE
     Dosage: 2 GTT, BID
     Route: 047
  2. RESTASIS? [Suspect]
     Route: 047
  3. COREG [Concomitant]
     Indication: PALPITATIONS
     Dosage: UNK
     Route: 048
  4. BENICAR [Concomitant]
     Indication: HYPERTENSION
     Dosage: UNK
     Route: 048
  5. PAXIL [Concomitant]
     Indication: DEPRESSION
     Dosage: UNK
     Route: 048
  6. PLAVIX                             /01220701/ [Concomitant]
     Indication: ANTICOAGULANT THERAPY
     Dosage: UNK
     Route: 048
  7. TRAZADONE [Concomitant]
     Indication: INSOMNIA
     Dosage: UNK
     Route: 048
  8. MELATONIN [Concomitant]
     Indication: INSOMNIA
     Dosage: UNK
     Route: 048
  9. CLONAZEPAM [Concomitant]
     Indication: ANXIETY
     Dosage: UNK
  10. PROTONIX                           /01263201/ [Concomitant]
     Indication: GASTROOESOPHAGEAL REFLUX DISEASE
     Route: 048
  11. SYNTHROID [Concomitant]
     Indication: HYPOTHYROIDISM
     Dosage: UNK
     Route: 048
  12. SAMILASAN [Concomitant]
     Indication: CATARACT
     Dosage: 2 GTT, BID
     Route: 047
  13. BUMEX [Concomitant]
     Indication: DIURETIC THERAPY
     Dosage: UNK
     Route: 048

REACTIONS (3)
  - Eye irritation [Not Recovered/Not Resolved]
  - Eye irritation [Not Recovered/Not Resolved]
  - Lacrimation increased [Not Recovered/Not Resolved]
